FAERS Safety Report 14355401 (Version 8)
Quarter: 2020Q3

REPORT INFORMATION
  Report Type: Report from Study
  Country: HU (occurrence: HU)
  Receive Date: 20180105
  Receipt Date: 20180724
  Transmission Date: 20201105
  Serious: Yes (Other)
  Sender: FDA-Public Use
  Company Number: HU-ASTRAZENECA-2017SF23276

PATIENT
  Sex: Female

DRUGS (17)
  1. EXEMESTANE. [Suspect]
     Active Substance: EXEMESTANE
     Indication: PRODUCT USED FOR UNKNOWN INDICATION
     Dosage: UNK
     Route: 065
     Dates: start: 201706
  2. TAXOTERE [Suspect]
     Active Substance: DOCETAXEL
     Indication: PRODUCT USED FOR UNKNOWN INDICATION
     Dosage: UNK
     Route: 065
     Dates: start: 201601
  3. AFINITOR [Suspect]
     Active Substance: EVEROLIMUS
     Indication: BREAST CANCER METASTATIC
     Route: 065
     Dates: start: 20170601
  4. FASLODEX [Suspect]
     Active Substance: FULVESTRANT
     Indication: PRODUCT USED FOR UNKNOWN INDICATION
     Dosage: UNK
     Route: 030
     Dates: start: 201510
  5. GOSERELIN [Suspect]
     Active Substance: GOSERELIN
     Indication: INVASIVE DUCTAL BREAST CARCINOMA
     Route: 058
     Dates: start: 201401
  6. EXEMESTANE. [Suspect]
     Active Substance: EXEMESTANE
     Indication: PRODUCT USED FOR UNKNOWN INDICATION
     Dosage: UNK
     Route: 065
     Dates: start: 201706
  7. TAXOTERE [Suspect]
     Active Substance: DOCETAXEL
     Indication: PRODUCT USED FOR UNKNOWN INDICATION
     Dosage: UNK
     Route: 065
     Dates: start: 201601
  8. PALBOCICLIB [Suspect]
     Active Substance: PALBOCICLIB
     Indication: PRODUCT USED FOR UNKNOWN INDICATION
     Dosage: UNK
     Route: 048
     Dates: start: 201611
  9. ZOLEDRONIC ACID [Suspect]
     Active Substance: ZOLEDRONIC ACID
     Indication: PRODUCT USED FOR UNKNOWN INDICATION
     Dosage: UNK
     Route: 065
     Dates: start: 201601
  10. XGEVA [Suspect]
     Active Substance: DENOSUMAB
     Indication: PRODUCT USED FOR UNKNOWN INDICATION
     Dosage: UNK
     Route: 065
     Dates: start: 201611
  11. XELODA [Suspect]
     Active Substance: CAPECITABINE
     Indication: PRODUCT USED FOR UNKNOWN INDICATION
     Dosage: UNKNOWN
     Route: 065
     Dates: start: 201601
  12. LETROZOLE. [Suspect]
     Active Substance: LETROZOLE
     Indication: INVASIVE DUCTAL BREAST CARCINOMA
     Dosage: UNK
     Route: 065
     Dates: start: 20140101, end: 20151001
  13. XGEVA [Suspect]
     Active Substance: DENOSUMAB
     Indication: PRODUCT USED FOR UNKNOWN INDICATION
     Dosage: UNK
     Route: 065
     Dates: start: 201706
  14. FASLODEX [Suspect]
     Active Substance: FULVESTRANT
     Indication: PRODUCT USED FOR UNKNOWN INDICATION
     Dosage: UNK
     Route: 030
     Dates: start: 201510
  15. XELODA [Suspect]
     Active Substance: CAPECITABINE
     Indication: PRODUCT USED FOR UNKNOWN INDICATION
     Dosage: UNKNOWN
     Route: 065
     Dates: start: 201601
  16. ZOLEDRONIC ACID [Suspect]
     Active Substance: ZOLEDRONIC ACID
     Indication: PRODUCT USED FOR UNKNOWN INDICATION
     Dosage: UNK
     Route: 065
     Dates: start: 201601
  17. IBANDRONIC ACID. [Suspect]
     Active Substance: IBANDRONIC ACID
     Indication: INVASIVE DUCTAL BREAST CARCINOMA
     Dosage: UNK
     Route: 065
     Dates: start: 201401

REACTIONS (10)
  - Metastases to liver [Unknown]
  - Metastases to adrenals [Unknown]
  - Metastases to skin [Unknown]
  - Malignant neoplasm progression [Unknown]
  - Dermatitis [Unknown]
  - Metastases to spine [Unknown]
  - Metastases to pleura [Unknown]
  - Breast cancer [Unknown]
  - Invasive ductal breast carcinoma [Unknown]
  - Metastases to bone [Unknown]

NARRATIVE: CASE EVENT DATE: 201411
